FAERS Safety Report 8486241-5 (Version None)
Quarter: 2012Q3

REPORT INFORMATION
  Report Type: 
  Country: None (occurrence: None)
  Receive Date: 20120703
  Receipt Date: 20120625
  Transmission Date: 20120928
  Serious: Yes (Congenital Anomaly)
  Sender: FDA-Public Use
  Company Number: DE-TEVA-344997GER

PATIENT
  Age: 0 Year
  Sex: Female

DRUGS (3)
  1. RITALIN [Suspect]
     Route: 064
  2. FOLIO [Concomitant]
     Route: 064
  3. CITALOPRAM HYDROBROMIDE [Suspect]
     Route: 064

REACTIONS (1)
  - CLEFT LIP AND PALATE [None]
